FAERS Safety Report 9021065 (Version 1)
Quarter: 2013Q1

REPORT INFORMATION
  Report Type: Spontaneous
  Country: US (occurrence: US)
  Receive Date: 20130119
  Receipt Date: 20130119
  Transmission Date: 20140127
  Serious: No
  Sender: FDA-Public Use
  Company Number: US-ALLERGAN-1204326US

PATIENT
  Sex: Female

DRUGS (2)
  1. BOTOX COSMETIC [Suspect]
     Indication: SKIN WRINKLING
     Dosage: UNK
     Route: 030
     Dates: start: 20120322, end: 20120322
  2. JUVEDERM [Suspect]
     Indication: SKIN WRINKLING
     Dosage: UNK
     Dates: start: 20120322, end: 20120322

REACTIONS (8)
  - Injection site vesicles [Recovering/Resolving]
  - Influenza like illness [Recovering/Resolving]
  - Injection site dryness [Recovering/Resolving]
  - Eye swelling [Recovering/Resolving]
  - Injection site infection [Recovering/Resolving]
  - Contusion [Recovering/Resolving]
  - Injection site pain [Recovering/Resolving]
  - Injection site erythema [Recovering/Resolving]
